FAERS Safety Report 25884525 (Version 1)
Quarter: 2025Q4

REPORT INFORMATION
  Report Type: Spontaneous
  Country: US (occurrence: US)
  Receive Date: 20251006
  Receipt Date: 20251006
  Transmission Date: 20260118
  Serious: No
  Sender: RANBAXY
  Company Number: US-SUN PHARMACEUTICAL INDUSTRIES LTD-2024R1-466323

PATIENT
  Sex: Female

DRUGS (9)
  1. CEQUA [Suspect]
     Active Substance: CYCLOSPORINE
     Indication: Dry eye
     Dosage: 1 DROP, IN EACH EYE, BID
     Route: 065
     Dates: start: 20240815
  2. SALINE [Concomitant]
     Active Substance: SODIUM CHLORIDE
     Indication: Eye irritation
     Dosage: UNK
     Route: 047
  3. SALINE [Concomitant]
     Active Substance: SODIUM CHLORIDE
     Indication: Eye pain
  4. FISH OIL [Concomitant]
     Active Substance: FISH OIL
     Indication: Product used for unknown indication
     Dosage: UNK
     Route: 065
  5. VITAMIN D3 [Concomitant]
     Active Substance: CHOLECALCIFEROL
     Indication: Product used for unknown indication
     Dosage: UNK
     Route: 065
  6. VITAMIN C [Concomitant]
     Active Substance: ASCORBIC ACID
     Indication: Product used for unknown indication
     Dosage: UNK
     Route: 065
  7. ZINC [Concomitant]
     Active Substance: ZINC
     Indication: Product used for unknown indication
     Dosage: UNK
     Route: 065
  8. LUTEIN [Concomitant]
     Active Substance: LUTEIN
     Indication: Product used for unknown indication
     Dosage: UNK
     Route: 065
  9. ZEAXANTHIN [Concomitant]
     Active Substance: ZEAXANTHIN
     Indication: Product used for unknown indication
     Dosage: UNK
     Route: 065

REACTIONS (4)
  - Eye irritation [Unknown]
  - Eye pain [Unknown]
  - Vision blurred [Unknown]
  - Therapy cessation [Unknown]
